FAERS Safety Report 9458488 (Version 1)
Quarter: 2013Q3

REPORT INFORMATION
  Report Type: Spontaneous
  Country: US (occurrence: US)
  Receive Date: 20130814
  Receipt Date: 20130814
  Transmission Date: 20140515
  Serious: Yes (Other)
  Sender: FDA-Public Use
  Company Number: US-SANOFI-AVENTIS-2012SA057139

PATIENT
  Sex: 0

DRUGS (1)
  1. AMBIEN [Suspect]
     Indication: INSOMNIA
     Route: 048

REACTIONS (6)
  - Drug dependence [Unknown]
  - Drug tolerance [Unknown]
  - Drug effect decreased [Unknown]
  - Wrong technique in drug usage process [Unknown]
  - Depression [Unknown]
  - Anxiety [Unknown]
